FAERS Safety Report 9237542 (Version 2)
Quarter: 2016Q3

REPORT INFORMATION
  Report Type: Report from Study
  Country: US (occurrence: US)
  Receive Date: 20130418
  Receipt Date: 20160704
  Transmission Date: 20161109
  Serious: Yes (Other)
  Sender: FDA-Public Use
  Company Number: US-RANBAXY-2013US-67856

PATIENT
  Age: 37 Year
  Sex: Female

DRUGS (1)
  1. SUDAFED-D [Suspect]
     Active Substance: ACETAMINOPHEN\PSEUDOEPHEDRINE
     Indication: SINUSITIS
     Dosage: UNK UNK, BID
     Route: 065

REACTIONS (1)
  - Colitis ischaemic [Recovering/Resolving]
